FAERS Safety Report 7751808-6 (Version None)
Quarter: 2011Q3

REPORT INFORMATION
  Report Type: 
  Country: None (occurrence: None)
  Receive Date: 20110914
  Receipt Date: 20110914
  Transmission Date: 20111222
  Serious: No
  Sender: FDA-Public Use
  Company Number: None

PATIENT
  Age: 48 Year
  Sex: Male
  Weight: 101.6057 kg

DRUGS (1)
  1. STELARA [Suspect]
     Indication: PULMONARY EMBOLISM
     Dates: start: 20110714

REACTIONS (1)
  - PULMONARY EMBOLISM [None]
